FAERS Safety Report 16594784 (Version 2)
Quarter: 2020Q2

REPORT INFORMATION
  Report Type: Spontaneous
  Country: US (occurrence: US)
  Receive Date: 20190718
  Receipt Date: 20200513
  Transmission Date: 20200713
  Serious: No
  Sender: FDA-Public Use
  Company Number: US-TEVA-2019-US-1079685

PATIENT
  Sex: Female

DRUGS (3)
  1. HCTZ [Concomitant]
     Active Substance: HYDROCHLOROTHIAZIDE
  2. FENTANYL. [Suspect]
     Active Substance: FENTANYL
     Dosage: THE SMALLEST DOSE
     Route: 062
     Dates: start: 201412, end: 201412
  3. HYDROCODNE/ACETAMNOPHEN [Concomitant]
     Dosage: 10-325

REACTIONS (3)
  - Dyskinesia [Not Recovered/Not Resolved]
  - Impaired work ability [Unknown]
  - Tremor [Not Recovered/Not Resolved]
